FAERS Safety Report 4958842-X (Version None)
Quarter: 2006Q1

REPORT INFORMATION
  Report Type: 
  Country: None (occurrence: None)
  Receive Date: 20060324
  Receipt Date: 20060320
  Transmission Date: 20060701
  Serious: Yes (Other)
  Sender: FDA-Public Use
  Company Number: FRWYE491021MAR06

PATIENT
  Age: 57 Year
  Sex: Female

DRUGS (2)
  1. EFFEXOR [Suspect]
     Dosage: 225 MG TOTAL DAILY ORAL
     Route: 048
  2. ANTIPSYCHOTIC AGENT (ANTIPSYCHOTIC AGENT) [Concomitant]

REACTIONS (3)
  - DYSPNOEA EXERTIONAL [None]
  - ERYTHEMA [None]
  - PRURITUS [None]
